FAERS Safety Report 6824219-5 (Version None)
Quarter: 2010Q3

REPORT INFORMATION
  Report Type: 
  Country: None (occurrence: None)
  Receive Date: 20100708
  Receipt Date: 20061012
  Transmission Date: 20110219
  Serious: No
  Sender: FDA-Public Use
  Company Number: US-PFIZER INC-2006126725

PATIENT
  Sex: Male
  Weight: 95.25 kg

DRUGS (4)
  1. CHANTIX [Suspect]
     Indication: SMOKING CESSATION THERAPY
     Dates: start: 20060926, end: 20061011
  2. LIPITOR [Concomitant]
  3. XANAX [Concomitant]
  4. LEVITRA [Concomitant]

REACTIONS (2)
  - DIARRHOEA [None]
  - RASH [None]
